FAERS Safety Report 11874098 (Version 3)
Quarter: 2018Q4

REPORT INFORMATION
  Report Type: Report from Study
  Country: US (occurrence: US)
  Receive Date: 20151229
  Receipt Date: 20181204
  Transmission Date: 20190204
  Serious: No
  Sender: FDA-Public Use
  Company Number: PHEH2015US006270

PATIENT
  Sex: Male

DRUGS (1)
  1. NEORAL [Suspect]
     Active Substance: CYCLOSPORINE
     Indication: HYPOGONADISM MALE
     Dosage: 300 MG, QD
     Route: 048

REACTIONS (5)
  - Nasal congestion [Unknown]
  - Tooth infection [Unknown]
  - Product use in unapproved indication [Unknown]
  - Hypogonadism male [Unknown]
  - Pyrexia [Unknown]
